FAERS Safety Report 4711547-2 (Version None)
Quarter: 2005Q3

REPORT INFORMATION
  Report Type: 
  Country: None (occurrence: None)
  Receive Date: 20050708
  Receipt Date: 20050708
  Transmission Date: 20060218
  Serious: Yes (Other)
  Sender: FDA-Public Use
  Company Number: None

PATIENT
  Age: 51 Year
  Sex: Female
  Weight: 68 kg

DRUGS (1)
  1. METHADONE [Suspect]
     Indication: PAIN
     Dosage: 15 MG , 5 MG Q8H, ORAL
     Route: 048
     Dates: start: 20050527, end: 20050527

REACTIONS (6)
  - ANXIETY [None]
  - DRY MOUTH [None]
  - LACRIMATION INCREASED [None]
  - OEDEMA [None]
  - PRURITUS [None]
  - RASH [None]
